FAERS Safety Report 8469629-8 (Version None)
Quarter: 2012Q2

REPORT INFORMATION
  Report Type: 
  Country: None (occurrence: None)
  Receive Date: 20120626
  Receipt Date: 20120504
  Transmission Date: 20120825
  Serious: No
  Sender: FDA-Public Use
  Company Number: US-TEVA-336825USA

PATIENT
  Age: 35 Year
  Sex: Female

DRUGS (1)
  1. QNASL [Suspect]
     Indication: RHINITIS ALLERGIC
     Dates: start: 20120425, end: 20120401

REACTIONS (1)
  - MIGRAINE [None]
